FAERS Safety Report 16016841 (Version 12)
Quarter: 2021Q1

REPORT INFORMATION
  Report Type: Spontaneous
  Country: US (occurrence: US)
  Receive Date: 20190228
  Receipt Date: 20210219
  Transmission Date: 20210419
  Serious: No
  Sender: FDA-Public Use
  Company Number: US-PFIZER INC-2019082575

PATIENT
  Age: 52 Year
  Sex: Female

DRUGS (2)
  1. LYRICA [Suspect]
     Active Substance: PREGABALIN
     Dosage: 250 MG, DAILY (50 MG, FIVE CAPSULES PER  DAY; 5 TIMES A DAY)
     Dates: start: 20191112
  2. LYRICA [Suspect]
     Active Substance: PREGABALIN
     Dosage: 250 MG, DAILY (TAKING 5 CAPSULES PER DAY)
     Dates: start: 20210201

REACTIONS (5)
  - Aphonia [Unknown]
  - Malaise [Unknown]
  - Insomnia [Unknown]
  - Speech disorder [Unknown]
  - Cough [Unknown]
